FAERS Safety Report 4770604-5 (Version None)
Quarter: 2005Q3

REPORT INFORMATION
  Report Type: 
  Country: None (occurrence: None)
  Receive Date: 20050915
  Receipt Date: 20050907
  Transmission Date: 20060218
  Serious: Yes (Death)
  Sender: FDA-Public Use
  Company Number: US-JNJFOC-20050901983

PATIENT
  Age: 39 Year
  Sex: Male

DRUGS (1)
  1. TRAMADOL [Suspect]
     Indication: DRUG USE FOR UNKNOWN INDICATION
     Route: 048

REACTIONS (7)
  - COMA [None]
  - COMPLETED SUICIDE [None]
  - DYSPNOEA [None]
  - HYPERGLYCAEMIA [None]
  - INTENTIONAL MISUSE [None]
  - OVERDOSE [None]
  - THERAPY NON-RESPONDER [None]
